FAERS Safety Report 8242017-5 (Version None)
Quarter: 2012Q1

REPORT INFORMATION
  Report Type: 
  Country: None (occurrence: None)
  Receive Date: 20120329
  Receipt Date: 20120321
  Transmission Date: 20120608
  Serious: No
  Sender: FDA-Public Use
  Company Number: US-BIOGENIDEC-2012BI010014

PATIENT
  Sex: Female

DRUGS (2)
  1. AVONEX [Concomitant]
     Indication: MULTIPLE SCLEROSIS
     Route: 030
  2. TYSABRI [Suspect]
     Indication: MULTIPLE SCLEROSIS
     Route: 042
     Dates: start: 20111102

REACTIONS (7)
  - VISION BLURRED [None]
  - NERVE COMPRESSION [None]
  - CONTUSION [None]
  - SPEECH DISORDER [None]
  - FALL [None]
  - MUSCULAR WEAKNESS [None]
  - RASH GENERALISED [None]
